FAERS Safety Report 10425524 (Version 2)
Quarter: 2014Q3

REPORT INFORMATION
  Report Type: Report from Study
  Country: JP (occurrence: JP)
  Receive Date: 20140902
  Receipt Date: 20140908
  Transmission Date: 20150326
  Serious: Yes (Hospitalization)
  Sender: FDA-Public Use
  Company Number: JP-AMGEN-JPNCT2014065836

PATIENT
  Age: 3 Year
  Sex: Male
  Weight: 12 kg

DRUGS (9)
  1. IMUNACE [Suspect]
     Active Substance: TECELEUKIN
     Dosage: 0.55 MILLION IU, UNK
     Route: 065
  2. PURSENNIDE                         /00571901/ [Concomitant]
     Indication: CONSTIPATION
     Dosage: 6 MG, BID
     Route: 048
     Dates: start: 20140124
  3. OLMETEC [Concomitant]
     Active Substance: OLMESARTAN MEDOXOMIL
     Indication: HYPERTENSION
     Dosage: 0.5 MG, QD
     Route: 048
     Dates: start: 20131029
  4. BAKTAR [Concomitant]
     Active Substance: SULFAMETHOXAZOLE\TRIMETHOPRIM
     Dosage: 1 G, 2X/WEEK
     Route: 048
     Dates: start: 20130918
  5. FILGRASTIM [Suspect]
     Active Substance: FILGRASTIM
     Indication: NEUROBLASTOMA
     Dosage: 59 MUG, UNK
     Route: 065
     Dates: start: 20140418
  6. URSO [Concomitant]
     Active Substance: URSODIOL
     Dosage: 100 MG, BID
     Route: 048
     Dates: start: 20130731
  7. IMUNACE [Suspect]
     Active Substance: TECELEUKIN
     Indication: NEUROBLASTOMA
     Dosage: 0.41 MILLION IU, UNK
     Route: 065
  8. BAKTAR [Concomitant]
     Active Substance: SULFAMETHOXAZOLE\TRIMETHOPRIM
     Indication: INFECTION PROPHYLAXIS
     Dosage: 1 G, BID
     Route: 048
     Dates: start: 20130918
  9. HEAVY MAGNESIUM OXIDE [Concomitant]
     Indication: CONSTIPATION
     Dosage: 0.6 G, BID
     Route: 048
     Dates: start: 20130902

REACTIONS (1)
  - Device related infection [Recovered/Resolved]

NARRATIVE: CASE EVENT DATE: 20140817
